FAERS Safety Report 4386142-8 (Version None)
Quarter: 2004Q2

REPORT INFORMATION
  Report Type: 
  Country: None (occurrence: None)
  Receive Date: 20040625
  Receipt Date: 20040625
  Transmission Date: 20050107
  Serious: No
  Sender: FDA-Public Use
  Company Number: None

PATIENT
  Age: 63 Year
  Sex: Female

DRUGS (3)
  1. MEPERIDINE HCL [Suspect]
     Indication: PAIN
     Dosage: 25 MG IV
     Route: 042
     Dates: start: 20040222
  2. MEPERIDINE HCL [Suspect]
     Indication: PANCREATITIS
     Dosage: 25 MG IV
     Route: 042
     Dates: start: 20040222
  3. PROMETHAZINE [Suspect]
     Dosage: 125 MG IV
     Route: 042
     Dates: start: 20040222

REACTIONS (2)
  - HYPOTENSION [None]
  - MEDICATION ERROR [None]
